FAERS Safety Report 15596019 (Version 3)
Quarter: 2019Q4

REPORT INFORMATION
  Report Type: Spontaneous
  Country: US (occurrence: US)
  Receive Date: 20181107
  Receipt Date: 20191203
  Transmission Date: 20200122
  Serious: Yes (Other)
  Sender: FDA-Public Use
  Company Number: US-PFIZER INC-2018452773

PATIENT
  Age: 70 Year
  Sex: Female

DRUGS (2)
  1. VENLAFAXINE HCL [Suspect]
     Active Substance: VENLAFAXINE HYDROCHLORIDE
     Indication: DEPRESSION
     Dosage: UNK
     Dates: start: 2016
  2. VENLAFAXINE HCL [Suspect]
     Active Substance: VENLAFAXINE HYDROCHLORIDE
     Dosage: 150 MG, DAILY
     Route: 048

REACTIONS (7)
  - Aggression [Recovered/Resolved]
  - Body height decreased [Unknown]
  - Suicidal behaviour [Unknown]
  - Crying [Recovered/Resolved]
  - Anger [Unknown]
  - Fear [Recovered/Resolved]
  - Mental disorder [Unknown]
